FAERS Safety Report 11025795 (Version 1)
Quarter: 2015Q2

REPORT INFORMATION
  Report Type: Spontaneous
  Country: US (occurrence: US)
  Receive Date: 20150414
  Receipt Date: 20150414
  Transmission Date: 20150821
  Serious: No
  Sender: FDA-Public Use
  Company Number: US-TEVA-554633ACC

PATIENT
  Age: 30 Year
  Sex: Female
  Weight: 49.03 kg

DRUGS (3)
  1. CREATINE [Concomitant]
     Active Substance: CREATINE
     Indication: PHYSIOTHERAPY
     Dosage: UNKNOWN FORM STRENGTH
     Route: 065
  2. PLAN B ONE-STEP [Suspect]
     Active Substance: LEVONORGESTREL
     Indication: POST COITAL CONTRACEPTION
     Dosage: 1.5 MILLIGRAM DAILY;
     Route: 048
     Dates: start: 20150407
  3. PROBIOTICS [Concomitant]
     Active Substance: PROBIOTICS NOS
     Dosage: UNKNOWN FORM STRENGTH
     Route: 065

REACTIONS (2)
  - Nausea [Not Recovered/Not Resolved]
  - Headache [Not Recovered/Not Resolved]

NARRATIVE: CASE EVENT DATE: 20150408
